FAERS Safety Report 7676599-9 (Version None)
Quarter: 2011Q3

REPORT INFORMATION
  Report Type: 
  Country: None (occurrence: None)
  Receive Date: 20110809
  Receipt Date: 20110809
  Transmission Date: 20111222
  Serious: No
  Sender: FDA-Public Use
  Company Number: None

PATIENT
  Sex: Female

DRUGS (1)
  1. REBIF [Suspect]
     Indication: MULTIPLE SCLEROSIS
     Dosage: 44MCG 3 TIMES WEEKLY SUBCUTANEOUSLY
     Route: 058
     Dates: start: 20060901

REACTIONS (3)
  - PANIC ATTACK [None]
  - TREATMENT FAILURE [None]
  - LABORATORY TEST ABNORMAL [None]
